FAERS Safety Report 11449889 (Version 1)
Quarter: 2015Q3

REPORT INFORMATION
  Report Type: Spontaneous
  Country: US (occurrence: US)
  Receive Date: 20150903
  Receipt Date: 20150903
  Transmission Date: 20151125
  Serious: No
  Sender: FDA-Public Use
  Company Number: US-ROCHE-1058813

PATIENT
  Sex: Female

DRUGS (5)
  1. PEGASYS [Suspect]
     Active Substance: PEGINTERFERON ALFA-2A
     Indication: CHRONIC HEPATITIS C
     Route: 058
     Dates: start: 20120406
  2. TELAPREVIR [Suspect]
     Active Substance: TELAPREVIR
     Indication: CHRONIC HEPATITIS C
     Route: 065
     Dates: start: 20120406
  3. METFORMIN [Concomitant]
     Active Substance: METFORMIN HYDROCHLORIDE
  4. RIBASPHERE [Suspect]
     Active Substance: RIBAVIRIN
     Indication: CHRONIC HEPATITIS C
     Dosage: IN DIVIDED DOSES
     Route: 048
     Dates: start: 20120406
  5. GLYBURIDE. [Concomitant]
     Active Substance: GLYBURIDE

REACTIONS (15)
  - Injection site urticaria [Unknown]
  - Loss of consciousness [Unknown]
  - Pollakiuria [Unknown]
  - Erythema [Unknown]
  - Pruritus [Unknown]
  - Dry skin [Unknown]
  - Decreased appetite [Unknown]
  - Anorectal discomfort [Unknown]
  - Blood glucose decreased [Unknown]
  - Skin exfoliation [Unknown]
  - Injection site bruising [Unknown]
  - Anal pruritus [Unknown]
  - Diarrhoea [Unknown]
  - Fatigue [Unknown]
  - Injection site reaction [Unknown]
